FAERS Safety Report 4445914-1 (Version None)
Quarter: 2004Q3

REPORT INFORMATION
  Report Type: 
  Country: None (occurrence: None)
  Receive Date: 20040903
  Receipt Date: 20040818
  Transmission Date: 20050211
  Serious: Yes (Other)
  Sender: FDA-Public Use
  Company Number: 2004BL006090

PATIENT
  Age: 81 Year
  Sex: Female

DRUGS (2)
  1. BRIMONIDINE TARTRATE OPHTHALMIC SOLUTION 0.2% [Suspect]
     Indication: OPEN ANGLE GLAUCOMA
     Dosage: OPHTHALMIC
     Route: 047
  2. CARTEOLOL HCL [Concomitant]

REACTIONS (7)
  - CONJUNCTIVAL SCAR [None]
  - CONJUNCTIVITIS [None]
  - CORNEAL DEPOSITS [None]
  - ERYTHEMA OF EYELID [None]
  - EYE REDNESS [None]
  - PHOTOPHOBIA [None]
  - SYMBLEPHARON [None]
